FAERS Safety Report 6658650-8 (Version None)
Quarter: 2010Q1

REPORT INFORMATION
  Report Type: 
  Country: None (occurrence: None)
  Receive Date: 20100325
  Receipt Date: 20100304
  Transmission Date: 20100710
  Serious: Yes (Hospitalization)
  Sender: FDA-Public Use
  Company Number: 230005M09BEL

PATIENT
  Age: 24 Year
  Sex: Female

DRUGS (2)
  1. REBIF [Suspect]
     Indication: MULTIPLE SCLEROSIS
     Dosage: 44 MCG, 3 IN 1 WEEKS, SUBCUTANEOUS
     Route: 058
     Dates: start: 20080522
  2. REBIF [Suspect]

REACTIONS (10)
  - ANXIETY [None]
  - APHASIA [None]
  - DEPRESSION [None]
  - FOREIGN BODY [None]
  - INCISION SITE ABSCESS [None]
  - MULTIPLE SCLEROSIS RELAPSE [None]
  - NEEDLE ISSUE [None]
  - PAIN IN EXTREMITY [None]
  - SCAR [None]
  - SURGICAL FAILURE [None]
